FAERS Safety Report 16626294 (Version 1)
Quarter: 2019Q3

REPORT INFORMATION
  Report Type: Spontaneous
  Country: US (occurrence: US)
  Receive Date: 20190724
  Receipt Date: 20190724
  Transmission Date: 20191004
  Serious: No
  Sender: FDA-Public Use
  Company Number: US-SHIRE-US201847841

PATIENT
  Age: 73 Year
  Sex: Male
  Weight: 84.35 kg

DRUGS (1)
  1. GATTEX [Suspect]
     Active Substance: TEDUGLUTIDE\WATER
     Indication: SHORT-BOWEL SYNDROME
     Dosage: 0.422 ML, 1X/DAY:QD, UNDER THE SKIN
     Route: 058
     Dates: start: 20180921

REACTIONS (3)
  - Malaise [Not Recovered/Not Resolved]
  - Feeding disorder [Not Recovered/Not Resolved]
  - Adverse drug reaction [Not Recovered/Not Resolved]

NARRATIVE: CASE EVENT DATE: 20190401
